FAERS Safety Report 7095251-4 (Version None)
Quarter: 2010Q4

REPORT INFORMATION
  Report Type: 
  Country: None (occurrence: None)
  Receive Date: 20101111
  Receipt Date: 20100714
  Transmission Date: 20110411
  Serious: Yes (Hospitalization, Other)
  Sender: FDA-Public Use
  Company Number: US-BAYER-201025677NA

PATIENT
  Age: 43 Year
  Sex: Female
  Weight: 110 kg

DRUGS (8)
  1. YAZ [Suspect]
     Indication: HORMONE REPLACEMENT THERAPY
     Route: 048
     Dates: start: 20080901, end: 20081201
  2. MOTRIN [Concomitant]
     Indication: HEADACHE
  3. MIGRAINE MEDICATION NOS [Concomitant]
     Indication: MIGRAINE
  4. CITALOPRAM HYDROBROMIDE [Concomitant]
     Indication: PRODUCT USED FOR UNKNOWN INDICATION
     Dates: start: 20090101
  5. PROPRANOLOL [Concomitant]
     Indication: MIGRAINE
  6. TYLENOL PM [Concomitant]
     Indication: PAIN
  7. INDERAL [Concomitant]
     Indication: MIGRAINE
  8. HORMONE THERAPY [Concomitant]
     Indication: HORMONE REPLACEMENT THERAPY

REACTIONS (5)
  - DEEP VEIN THROMBOSIS [None]
  - DYSPNOEA [None]
  - PAIN IN EXTREMITY [None]
  - PULMONARY EMBOLISM [None]
  - TACHYCARDIA [None]
